FAERS Safety Report 7438912-7 (Version None)
Quarter: 2011Q2

REPORT INFORMATION
  Report Type: 
  Country: None (occurrence: None)
  Receive Date: 20110426
  Receipt Date: 20110418
  Transmission Date: 20111010
  Serious: Yes (Other)
  Sender: FDA-Public Use
  Company Number: US-RB-026070-11

PATIENT
  Age: 49 Year
  Sex: Male

DRUGS (1)
  1. SUBOXONE [Suspect]
     Indication: PRODUCT USED FOR UNKNOWN INDICATION
     Dosage: DOSING INFORMATION UNKNOWN - SUBLINGUAL FILM
     Route: 065

REACTIONS (4)
  - ANXIETY [None]
  - CONDITION AGGRAVATED [None]
  - PANIC ATTACK [None]
  - SUICIDAL IDEATION [None]
